FAERS Safety Report 12716851 (Version 1)
Quarter: 2016Q3

REPORT INFORMATION
  Report Type: Spontaneous
  Country: FR (occurrence: FR)
  Receive Date: 20160906
  Receipt Date: 20160906
  Transmission Date: 20161109
  Serious: Yes (Hospitalization, Other)
  Sender: FDA-Public Use
  Company Number: FR-FSC THERAPEUTICS-2016ECL00033

PATIENT
  Age: 80 Year
  Sex: Female

DRUGS (15)
  1. SPECIAFOLDINE [Concomitant]
     Active Substance: FOLIC ACID
     Dosage: UNK MG, UNK
  2. DULOXETINE. [Concomitant]
     Active Substance: DULOXETINE
     Dosage: UNK
  3. PARIET [Suspect]
     Active Substance: RABEPRAZOLE SODIUM
     Indication: PROPHYLAXIS
     Dosage: 20 MG, 1X/DAY
     Route: 048
  4. TARDYFERON [Suspect]
     Active Substance: FERROUS SULFATE
     Dosage: 40 MG, 2X/DAY
     Route: 048
  5. EZETIMIBE. [Concomitant]
     Active Substance: EZETIMIBE
  6. METFORMINE [Concomitant]
     Active Substance: METFORMIN HYDROCHLORIDE
  7. PARACETAMOL [Concomitant]
     Active Substance: ACETAMINOPHEN
  8. CLONIDINE. [Concomitant]
     Active Substance: CLONIDINE
     Dosage: UNK MG, UNK
  9. ZOLPIDEM [Concomitant]
     Active Substance: ZOLPIDEM\ZOLPIDEM TARTRATE
  10. BROMAZEPAN [Concomitant]
     Dosage: 3 UNK, UNK
  11. CANDESARTAN [Concomitant]
     Active Substance: CANDESARTAN
     Dosage: UNK MG, UNK
  12. NEBIVOLOL. [Concomitant]
     Active Substance: NEBIVOLOL
  13. DUOPLAVIN [Concomitant]
     Active Substance: ASPIRIN\CLOPIDOGREL
  14. FUROSEMIDE. [Concomitant]
     Active Substance: FUROSEMIDE
  15. INDAPAMIDE. [Concomitant]
     Active Substance: INDAPAMIDE

REACTIONS (5)
  - Anaemia [Recovering/Resolving]
  - Fall [Unknown]
  - Vertigo [Unknown]
  - Weight decreased [Unknown]
  - Asthenia [Unknown]

NARRATIVE: CASE EVENT DATE: 20160718
